FAERS Safety Report 4331897-1 (Version None)
Quarter: 2004Q2

REPORT INFORMATION
  Report Type: 
  Country: None (occurrence: None)
  Receive Date: 20040405
  Receipt Date: 19990413
  Transmission Date: 20050107
  Serious: No
  Sender: FDA-Public Use
  Company Number: US-GLAXOSMITHKLINE-A0090933A

PATIENT
  Age: 77 Year
  Sex: Female

DRUGS (7)
  1. SEREVENT [Suspect]
     Dosage: 2PUFF TWICE PER DAY
     Route: 055
  2. SEREVENT [Suspect]
     Dosage: 50MCG TWICE PER DAY
     Route: 055
     Dates: start: 20030529
  3. PRILOSEC [Concomitant]
     Route: 048
  4. SYNTHROID [Concomitant]
     Route: 048
  5. ASPIRIN [Concomitant]
     Dosage: 81MG PER DAY
     Route: 048
  6. ATIVAN [Concomitant]
     Route: 048
  7. PREDNISONE [Concomitant]

REACTIONS (2)
  - ASTHENIA [None]
  - PHARYNGOLARYNGEAL PAIN [None]
